FAERS Safety Report 7198211-8 (Version None)
Quarter: 2010Q4

REPORT INFORMATION
  Report Type: 
  Country: None (occurrence: None)
  Receive Date: 20101227
  Receipt Date: 20101216
  Transmission Date: 20110411
  Serious: Yes (Hospitalization)
  Sender: FDA-Public Use
  Company Number: CA-JNJFOC-20101206815

PATIENT
  Sex: Male
  Weight: 68.6 kg

DRUGS (6)
  1. REMICADE [Suspect]
     Indication: CROHN'S DISEASE
     Route: 042
  2. PREDNISONE [Concomitant]
     Route: 048
  3. IMURAN [Concomitant]
     Route: 048
  4. SYMBICORT [Concomitant]
  5. ZOPICLONE [Concomitant]
     Dosage: PRN
  6. CODEINE [Concomitant]
     Dosage: PRN

REACTIONS (4)
  - ABDOMINAL PAIN [None]
  - GASTROINTESTINAL ANASTOMOTIC LEAK [None]
  - INTESTINAL STENOSIS [None]
  - PELVIC ABSCESS [None]
